FAERS Safety Report 9496657 (Version 2)
Quarter: 2013Q3

REPORT INFORMATION
  Report Type: Report from Study
  Country: US (occurrence: US)
  Receive Date: 20130904
  Receipt Date: 20130916
  Transmission Date: 20140515
  Serious: No
  Sender: FDA-Public Use
  Company Number: US-US-EMD SERONO, INC.-7234350

PATIENT
  Age: 38 Year
  Sex: Male

DRUGS (4)
  1. REBIF [Suspect]
     Indication: MULTIPLE SCLEROSIS
     Route: 058
     Dates: start: 20101118, end: 20110904
  2. REBIF [Suspect]
     Route: 058
     Dates: start: 20130312
  3. ZOLOFT                             /01011401/ [Concomitant]
     Indication: ANXIETY
  4. XANAX [Concomitant]
     Indication: ANXIETY

REACTIONS (4)
  - Panic attack [Unknown]
  - Anxiety [Not Recovered/Not Resolved]
  - Multiple sclerosis relapse [Recovering/Resolving]
  - Influenza like illness [Not Recovered/Not Resolved]
